FAERS Safety Report 8238152-8 (Version None)
Quarter: 2012Q1

REPORT INFORMATION
  Report Type: 
  Country: None (occurrence: None)
  Receive Date: 20120327
  Receipt Date: 20120320
  Transmission Date: 20120608
  Serious: Yes (Hospitalization)
  Sender: FDA-Public Use
  Company Number: DE-ABBOTT-12P-062-0916960-00

PATIENT
  Sex: Male

DRUGS (2)
  1. MARCUMAR [Concomitant]
     Indication: PRODUCT USED FOR UNKNOWN INDICATION
  2. HUMIRA [Suspect]
     Indication: CROHN'S DISEASE
     Route: 058
     Dates: start: 20110808

REACTIONS (3)
  - HAEMOGLOBIN DECREASED [None]
  - GASTROINTESTINAL DISORDER [None]
  - HAEMORRHAGE [None]
